FAERS Safety Report 26157260 (Version 1)
Quarter: 2025Q4

REPORT INFORMATION
  Report Type: Spontaneous
  Country: IN (occurrence: IN)
  Receive Date: 20251215
  Receipt Date: 20251215
  Transmission Date: 20260118
  Serious: Yes (Other)
  Sender: REGENERON
  Company Number: IN-BAYER-2025A163493

PATIENT
  Sex: Male

DRUGS (3)
  1. EYLEA [Suspect]
     Active Substance: AFLIBERCEPT
     Indication: Product used for unknown indication
     Dosage: UNK, 40 MG/ML, SOLUTION FOR INJECTION
  2. EYLEA [Suspect]
     Active Substance: AFLIBERCEPT
     Dosage: UNK, TOTAL OF 9 DOSES PRIOR TO THE EVENT, 40 MG/ML, SOLUTION FOR INJECTION
     Dates: start: 20251025, end: 20251025
  3. EYLEA [Suspect]
     Active Substance: AFLIBERCEPT
     Dosage: 10TH INJECTION, 40 MG/ML, SOLUTION FOR INJECTION
     Dates: start: 20251127, end: 20251127

REACTIONS (2)
  - Choroidal neovascularisation [Unknown]
  - Drug ineffective [Unknown]

NARRATIVE: CASE EVENT DATE: 20251124
